FAERS Safety Report 20112672 (Version 1)
Quarter: 2021Q4

REPORT INFORMATION
  Report Type: Spontaneous
  Country: KR (occurrence: KR)
  Receive Date: 20211125
  Receipt Date: 20211125
  Transmission Date: 20220303
  Serious: Yes (Other)
  Sender: FDA-Public Use
  Company Number: KR-PFIZER INC-202101588619

PATIENT
  Age: 72 Year
  Sex: Female

DRUGS (1)
  1. PREGABALIN [Suspect]
     Active Substance: PREGABALIN
     Indication: Sciatica
     Dosage: 75 MG, 2X/DAY
     Route: 048
     Dates: start: 202110

REACTIONS (1)
  - Macular degeneration [Unknown]
